FAERS Safety Report 12706432 (Version 12)
Quarter: 2017Q1

REPORT INFORMATION
  Report Type: Spontaneous
  Country: US (occurrence: US)
  Receive Date: 20160901
  Receipt Date: 20170202
  Transmission Date: 20170428
  Serious: Yes (Other)
  Sender: FDA-Public Use
  Company Number: US-PFIZER INC-2016405239

PATIENT
  Age: 84 Year
  Sex: Female

DRUGS (22)
  1. FLUDROCORTISONE ACETATE. [Concomitant]
     Active Substance: FLUDROCORTISONE ACETATE
     Dosage: UNK
  2. METOCLOPRAMIDE HCL [Concomitant]
     Active Substance: METOCLOPRAMIDE HYDROCHLORIDE
     Dosage: UNK
  3. POTASSIUM [Concomitant]
     Active Substance: POTASSIUM
     Dosage: 75 MG, UNK
  4. FLUDROCORT [Concomitant]
     Dosage: 0.1 MG, UNK
  5. POTASSIUM CHLORIDE. [Concomitant]
     Active Substance: POTASSIUM CHLORIDE
     Dosage: UNK
  6. CURCUMIN [Concomitant]
     Active Substance: CURCUMIN
     Dosage: POW
  7. SUTENT [Suspect]
     Active Substance: SUNITINIB MALATE
     Dosage: 25 MG, 1X/DAY
     Route: 048
     Dates: start: 20161207
  8. LEVOFLOXACIN. [Concomitant]
     Active Substance: LEVOFLOXACIN
     Dosage: 500 MG, UNK
  9. TRAMADOL HCL [Concomitant]
     Active Substance: TRAMADOL HYDROCHLORIDE
     Dosage: UNK
  10. GABAPENTIN. [Concomitant]
     Active Substance: GABAPENTIN
     Dosage: UNK
  11. FLUCONAZOLE. [Concomitant]
     Active Substance: FLUCONAZOLE
     Dosage: UNK
  12. SUTENT [Suspect]
     Active Substance: SUNITINIB MALATE
     Indication: GASTROINTESTINAL STROMAL TUMOUR
     Dosage: 25 MG, DAILY (EVERYDAY), 28/42 DAYS
     Route: 048
     Dates: start: 20160818, end: 201609
  13. AMOXICILLIN. [Concomitant]
     Active Substance: AMOXICILLIN
     Dosage: UNK
  14. SUTENT [Suspect]
     Active Substance: SUNITINIB MALATE
     Dosage: 25 MG, DAILY (ONLY TOOK FOR ONE WEEK)
     Route: 048
     Dates: start: 20160819
  15. HALOBETASOL PROPIONATE. [Concomitant]
     Active Substance: HALOBETASOL PROPIONATE
     Dosage: UNK
  16. TYLENOL [Concomitant]
     Active Substance: ACETAMINOPHEN
     Dosage: 325 MG, UNK
  17. METOCLOPRAM [Concomitant]
     Active Substance: METOCLOPRAMIDE
     Dosage: 10 MG, UNK
  18. SUTENT [Suspect]
     Active Substance: SUNITINIB MALATE
     Dosage: 25 MG, UNK (USE AS DIRECTED BY PHYSICIAN)
  19. METRONIDAZOLE. [Concomitant]
     Active Substance: METRONIDAZOLE
     Dosage: UNK
  20. PRILOSEC [Concomitant]
     Active Substance: OMEPRAZOLE MAGNESIUM
     Dosage: UNK
  21. SUTENT [Suspect]
     Active Substance: SUNITINIB MALATE
     Dosage: 25 MG, DAILY
     Route: 048
     Dates: start: 201609, end: 20161011
  22. ONDANSETRON [Concomitant]
     Active Substance: ONDANSETRON
     Dosage: UNK
     Route: 048

REACTIONS (24)
  - Tongue disorder [Not Recovered/Not Resolved]
  - Headache [Recovered/Resolved]
  - Dry mouth [Not Recovered/Not Resolved]
  - Pain in extremity [Unknown]
  - Musculoskeletal pain [Unknown]
  - Pneumonia [Unknown]
  - Fatigue [Not Recovered/Not Resolved]
  - Pain [Recovered/Resolved]
  - Malaise [Unknown]
  - Cerebrovascular accident [Not Recovered/Not Resolved]
  - Somnolence [Not Recovered/Not Resolved]
  - Paraesthesia [Not Recovered/Not Resolved]
  - Chest pain [Unknown]
  - Vertigo [Not Recovered/Not Resolved]
  - Urinary tract infection [Not Recovered/Not Resolved]
  - Gait disturbance [Not Recovered/Not Resolved]
  - Dizziness [Not Recovered/Not Resolved]
  - Feeling abnormal [Not Recovered/Not Resolved]
  - Nausea [Recovered/Resolved]
  - Muscle spasms [Not Recovered/Not Resolved]
  - Asthenia [Recovered/Resolved]
  - Ear infection [Not Recovered/Not Resolved]
  - Dyspnoea [Unknown]
  - Hyperhidrosis [Unknown]

NARRATIVE: CASE EVENT DATE: 2016
